FAERS Safety Report 7706726-6 (Version None)
Quarter: 2011Q3

REPORT INFORMATION
  Report Type: 
  Country: None (occurrence: None)
  Receive Date: 20110818
  Receipt Date: 20110804
  Transmission Date: 20111222
  Serious: Yes (Other)
  Sender: FDA-Public Use
  Company Number: AUR-APL-2011-04552

PATIENT
  Age: 76 Year
  Sex: Female

DRUGS (3)
  1. AMLODIPINE [Suspect]
     Indication: PRODUCT USED FOR UNKNOWN INDICATION
  2. ALBUTEROL SULFATE [Suspect]
     Indication: ASTHMA
     Dosage: (1 AS REQUIRED)
  3. FLUTICASONE PROPIONATE/SALMETEROL [Suspect]
     Indication: ASTHMA

REACTIONS (3)
  - CONDITION AGGRAVATED [None]
  - DRUG INEFFECTIVE [None]
  - ASTHMA [None]
